FAERS Safety Report 17999432 (Version 1)
Quarter: 2020Q3

REPORT INFORMATION
  Report Type: Spontaneous
  Country: US (occurrence: US)
  Receive Date: 20200708
  Receipt Date: 20200708
  Transmission Date: 20201103
  Serious: Yes (Hospitalization)
  Sender: FDA-Public Use
  Company Number: None

PATIENT
  Age: 23 Year
  Sex: Female

DRUGS (7)
  1. DOXYCYCL HYC [Concomitant]
  2. CEPHALEXIN. [Concomitant]
     Active Substance: CEPHALEXIN
  3. DIPHEN/ATROP [Concomitant]
     Active Substance: ATROPINE SULFATE\DIPHENOXYLATE
  4. CHLORD/CLIDI [Concomitant]
  5. ESTARYLLA [Concomitant]
     Active Substance: ETHINYL ESTRADIOL\NORGESTIMATE
  6. ACTEMRA [Suspect]
     Active Substance: TOCILIZUMAB
     Indication: RHEUMATOID ARTHRITIS
     Dosage: ?          OTHER FREQUENCY:Q2WK;?
     Route: 058
  7. CIPROFLOXACN [Concomitant]
     Active Substance: CIPROFLOXACIN

REACTIONS (1)
  - Renal tubular acidosis [None]

NARRATIVE: CASE EVENT DATE: 20200706
